FAERS Safety Report 10257531 (Version 1)
Quarter: 2014Q2

REPORT INFORMATION
  Report Type: Spontaneous
  Country: US (occurrence: US)
  Receive Date: 20140625
  Receipt Date: 20140625
  Transmission Date: 20141212
  Serious: No
  Sender: FDA-Public Use
  Company Number: US-GLAXOSMITHKLINE-A1066494A

PATIENT
  Age: 49 Year
  Sex: Female
  Weight: 64.5 kg

DRUGS (3)
  1. VERAMYST [Suspect]
     Indication: RHINITIS ALLERGIC
     Dosage: 2PUFF TWICE PER DAY
     Route: 045
     Dates: start: 20140204, end: 20140318
  2. SYNTHROID [Concomitant]
  3. VIT D [Concomitant]

REACTIONS (4)
  - Back pain [Recovering/Resolving]
  - Chest pain [Recovering/Resolving]
  - Epistaxis [Recovering/Resolving]
  - Gastrooesophageal reflux disease [Recovering/Resolving]
